FAERS Safety Report 7892630-X (Version None)
Quarter: 2011Q4

REPORT INFORMATION
  Report Type: 
  Country: None (occurrence: None)
  Receive Date: 20111024
  Receipt Date: 20111013
  Transmission Date: 20120403
  Serious: Yes (Hospitalization)
  Sender: FDA-Public Use
  Company Number: AEUSA201100279

PATIENT
  Age: 27 Year
  Sex: Female
  Weight: 66.6788 kg

DRUGS (3)
  1. GAMUNEX [Suspect]
     Indication: IMMUNODEFICIENCY COMMON VARIABLE
     Dosage: 20 GM, TOTAL, IV
     Route: 042
     Dates: start: 20110912
  2. MULTI-VITAMINS [Concomitant]
  3. IMMUNE GLOBULIN INTRAVENOUS (HUMAN) [Suspect]
     Indication: IMMUNODEFICIENCY COMMON VARIABLE

REACTIONS (9)
  - BLOOD CREATININE INCREASED [None]
  - ARTHRALGIA [None]
  - OEDEMA PERIPHERAL [None]
  - INCISION SITE ABSCESS [None]
  - MATERNAL EXPOSURE DURING PREGNANCY [None]
  - INCORRECT DOSE ADMINISTERED [None]
  - POSTPARTUM DISORDER [None]
  - POST PROCEDURAL INFECTION [None]
  - CAESAREAN SECTION [None]
